FAERS Safety Report 11376485 (Version 3)
Quarter: 2015Q3

REPORT INFORMATION
  Report Type: Spontaneous
  Country: JP (occurrence: JP)
  Receive Date: 20150813
  Receipt Date: 20150921
  Transmission Date: 20151125
  Serious: Yes (Hospitalization, Other)
  Sender: FDA-Public Use
  Company Number: JP-GSKJP-JP2015JPN115021AA

PATIENT
  Age: 50 Year
  Sex: Female
  Weight: 43 kg

DRUGS (9)
  1. HALIZON [Concomitant]
     Dosage: 1 ML, TID
  2. PARIET [Concomitant]
     Active Substance: RABEPRAZOLE SODIUM
     Dosage: 1 DF, QD
  3. PROGRAF [Concomitant]
     Active Substance: TACROLIMUS\TACROLIMUS ANHYDROUS
     Dosage: 1 DF, BID
  4. ZETIA [Concomitant]
     Active Substance: EZETIMIBE
     Dosage: 1 DF, QD
  5. SAMITREL [Suspect]
     Active Substance: ATOVAQUONE
     Indication: ANTIFUNGAL PROPHYLAXIS
     Dosage: 1500 MG, 1D
     Route: 048
     Dates: start: 20150511, end: 20150810
  6. HACHIAZULE [Concomitant]
     Dosage: 2 G, TID
  7. PREDNISOLONE. [Concomitant]
     Active Substance: PREDNISOLONE
     Dosage: 5 DF, BID
  8. DIOVAN [Concomitant]
     Active Substance: VALSARTAN
     Dosage: 0.5 DF, QD
  9. ADALAT CC [Concomitant]
     Active Substance: NIFEDIPINE
     Dosage: 2 DF, BID

REACTIONS (4)
  - Pneumocystis jirovecii pneumonia [Recovering/Resolving]
  - Dyspnoea [Recovering/Resolving]
  - Computerised tomogram thorax abnormal [Recovering/Resolving]
  - Blood beta-D-glucan increased [Recovering/Resolving]

NARRATIVE: CASE EVENT DATE: 20150730
